FAERS Safety Report 24715404 (Version 2)
Quarter: 2025Q3

REPORT INFORMATION
  Report Type: Spontaneous
  Country: RU (occurrence: RU)
  Receive Date: 20241210
  Receipt Date: 20250809
  Transmission Date: 20251020
  Serious: Yes (Life-Threatening, Hospitalization, Disabling, Other)
  Sender: ALEXION PHARMACEUTICALS
  Company Number: RU-AstraZeneca-CH-00762804A

PATIENT
  Age: 66 Year
  Sex: Male

DRUGS (1)
  1. BRILINTA [Suspect]
     Active Substance: TICAGRELOR
     Indication: Thrombosis prophylaxis
     Dates: start: 20241008

REACTIONS (3)
  - Diverticulum intestinal haemorrhagic [Recovered/Resolved with Sequelae]
  - Pancreatitis necrotising [Unknown]
  - Vascular stent thrombosis [Unknown]

NARRATIVE: CASE EVENT DATE: 20241115
